FAERS Safety Report 6593933-1 (Version None)
Quarter: 2010Q1

REPORT INFORMATION
  Report Type: 
  Country: None (occurrence: None)
  Receive Date: 20100222
  Receipt Date: 20100210
  Transmission Date: 20100710
  Serious: Yes (Death, Hospitalization)
  Sender: FDA-Public Use
  Company Number: IT-PFIZER INC-2010018353

PATIENT
  Age: 76 Year
  Sex: Male

DRUGS (1)
  1. SUNITINIB MALATE [Suspect]
     Indication: RENAL NEOPLASM
     Dosage: UNK
     Route: 048
     Dates: start: 20091215, end: 20100110

REACTIONS (1)
  - GENERAL PHYSICAL HEALTH DETERIORATION [None]
